FAERS Safety Report 9568181 (Version 1)
Quarter: 2013Q3

REPORT INFORMATION
  Report Type: Spontaneous
  Country: US (occurrence: US)
  Receive Date: 20130930
  Receipt Date: 20130930
  Transmission Date: 20140515
  Serious: No
  Sender: FDA-Public Use
  Company Number: US-AMGEN-USASP2013056681

PATIENT
  Age: 62 Year
  Sex: Female

DRUGS (14)
  1. LATANOPROST [Concomitant]
     Dosage: SOL 0.005 %, UNK
  2. LEVOTHYROXIN [Concomitant]
     Dosage: 25 MUG, UNK
  3. SKELAXIN                           /00729302/ [Concomitant]
     Dosage: 800 MG, UNK
  4. METHOTREXATE [Concomitant]
     Dosage: 2.5 MG, UNK
  5. FOLIC ACID [Concomitant]
     Dosage: UNK UNK, QD
  6. DYAZIDE [Concomitant]
     Dosage: 37.5 - 25
  7. PHENERGAN                          /00033001/ [Concomitant]
     Dosage: 25 MG, UNK
  8. ENBREL [Suspect]
     Indication: PRODUCT USED FOR UNKNOWN INDICATION
     Dosage: 50 MG, QWK
     Route: 058
  9. COMBIGAN [Concomitant]
     Dosage: SOL 0.2 / 0.5 %
  10. COZAAR [Concomitant]
     Dosage: 25 MG, UNK
  11. CELEBREX [Concomitant]
     Dosage: 100 MG, UNK
  12. FLEXERIL                           /00428402/ [Concomitant]
     Dosage: 5 MG, UNK
  13. FISH OIL [Concomitant]
     Dosage: UNK
  14. KLOR CON M15 [Concomitant]
     Dosage: UNK

REACTIONS (2)
  - Nausea [Unknown]
  - Dizziness [Unknown]
